FAERS Safety Report 18127718 (Version 4)
Quarter: 2020Q4

REPORT INFORMATION
  Report Type: Spontaneous
  Country: US (occurrence: US)
  Receive Date: 20200810
  Receipt Date: 20201001
  Transmission Date: 20210113
  Serious: No
  Sender: FDA-Public Use
  Company Number: US-SA-2020SA206502

PATIENT

DRUGS (6)
  1. DAPSONE. [Concomitant]
     Active Substance: DAPSONE
  2. DUPIXENT [Suspect]
     Active Substance: DUPILUMAB
     Indication: DERMATITIS ATOPIC
     Dosage: 300 MG, QOW
     Route: 058
     Dates: start: 2020
  3. DOXYCYCLINE. [Concomitant]
     Active Substance: DOXYCYCLINE
     Dosage: UNK
     Dates: start: 201910
  4. NALTREXONE [Suspect]
     Active Substance: NALTREXONE
  5. PREDNISONE. [Suspect]
     Active Substance: PREDNISONE
  6. XOLAIR [Concomitant]
     Active Substance: OMALIZUMAB

REACTIONS (9)
  - Drug ineffective [Unknown]
  - Therapeutic response decreased [Unknown]
  - Pruritus [Unknown]
  - Quality of life decreased [Unknown]
  - Hot flush [Unknown]
  - Hormone level abnormal [Unknown]
  - Rash [Recovered/Resolved]
  - Abdominal discomfort [Unknown]
  - Adverse event [Unknown]

NARRATIVE: CASE EVENT DATE: 202008
